FAERS Safety Report 5114212-5 (Version None)
Quarter: 2006Q3

REPORT INFORMATION
  Report Type: 
  Country: None (occurrence: None)
  Receive Date: 20060925
  Receipt Date: 20060918
  Transmission Date: 20061208
  Serious: Yes (Hospitalization)
  Sender: FDA-Public Use
  Company Number: US-ROXANE LABORATORIES, INC-2006-DE-05025GD

PATIENT
  Age: 61 Year
  Sex: Female

DRUGS (17)
  1. ASPIRIN [Suspect]
     Indication: ANTIPLATELET THERAPY
     Route: 048
  2. ASPIRIN [Suspect]
     Route: 048
  3. PREDNISONE TAB [Suspect]
     Route: 048
  4. CLOPIDOGREL [Suspect]
     Indication: ANTIPLATELET THERAPY
     Route: 048
  5. TOPIRAMATE [Suspect]
     Indication: DIABETIC NEUROPATHY
     Route: 048
  6. HUMIRA [Concomitant]
     Dosage: 40 MG WEEKLY
     Route: 058
  7. LEFLUNOMIDE [Concomitant]
     Route: 048
  8. ALENDRONATE SODIUM [Concomitant]
     Dosage: 70 MG WEEKLY
     Route: 048
  9. CYCLOBENZAPRINE HCL [Concomitant]
     Route: 048
  10. OMEPRAZOLE [Concomitant]
     Route: 048
  11. LISINOPRIL [Concomitant]
     Route: 048
  12. FUROSEMIDE [Concomitant]
     Route: 048
  13. CALCIUM CARBONATE [Concomitant]
     Route: 048
  14. FERROUS SULFATE TAB [Concomitant]
     Route: 048
  15. ATORVASTATIN [Concomitant]
     Route: 048
  16. METOPROLOL SUCCINATE [Concomitant]
     Route: 048
  17. PACLITAXEL [Concomitant]
     Indication: CORONARY ARTERIAL STENT INSERTION

REACTIONS (9)
  - ANGINA PECTORIS [None]
  - DRUG INTERACTION [None]
  - DYSPNOEA [None]
  - EPISTAXIS [None]
  - HAEMATOCRIT DECREASED [None]
  - HAEMOGLOBIN DECREASED [None]
  - NASAL MUCOSAL DISORDER [None]
  - NAUSEA [None]
  - VOMITING [None]
